FAERS Safety Report 10803060 (Version 2)
Quarter: 2015Q2

REPORT INFORMATION
  Report Type: Report from Study
  Country: DE (occurrence: DE)
  Receive Date: 20150217
  Receipt Date: 20150409
  Transmission Date: 20150821
  Serious: Yes (Hospitalization)
  Sender: FDA-Public Use
  Company Number: US-ASTRAZENECA-2015SE14586

PATIENT
  Age: 6 Month
  Sex: Male
  Weight: 5.7 kg

DRUGS (1)
  1. SYNAGIS [Suspect]
     Active Substance: PALIVIZUMAB
     Indication: ANTIVIRAL PROPHYLAXIS
     Route: 030
     Dates: start: 20141106, end: 201501

REACTIONS (2)
  - Dyspnoea [Recovered/Resolved with Sequelae]
  - Breath sounds abnormal [Recovered/Resolved with Sequelae]

NARRATIVE: CASE EVENT DATE: 20150203
